FAERS Safety Report 8110424-7 (Version None)
Quarter: 2012Q1

REPORT INFORMATION
  Report Type: 
  Country: None (occurrence: None)
  Receive Date: 20120202
  Receipt Date: 20120124
  Transmission Date: 20120608
  Serious: Yes (Other)
  Sender: FDA-Public Use
  Company Number: US-GILEAD-2012-0049884

PATIENT
  Sex: Male

DRUGS (3)
  1. SUSTIVA [Suspect]
     Dosage: UNK
  2. SUSTIVA [Suspect]
     Dosage: UNK
  3. ATRIPLA [Suspect]
     Indication: HIV INFECTION

REACTIONS (1)
  - PULMONARY TUBERCULOSIS [None]
